FAERS Safety Report 5346795-4 (Version None)
Quarter: 2007Q2

REPORT INFORMATION
  Report Type: 
  Country: None (occurrence: None)
  Receive Date: 20070604
  Receipt Date: 20070518
  Transmission Date: 20071010
  Serious: Yes (Hospitalization)
  Sender: FDA-Public Use
  Company Number: 2007RR-07723

PATIENT
  Age: 87 Year
  Sex: Male

DRUGS (5)
  1. ASPIRIN [Suspect]
     Dosage: 75 MG, QD, ORAL
     Route: 048
     Dates: start: 20070328
  2. IBUPROFEN [Suspect]
     Dosage: ORAL
     Route: 048
     Dates: start: 20070301
  3. ATORVASTATIN CALCIUM [Concomitant]
  4. FERROUS SULPHATE (IRON) [Concomitant]
  5. PERINDOPRIL [Concomitant]

REACTIONS (3)
  - HAEMATEMESIS [None]
  - MELAENA [None]
  - OESOPHAGITIS [None]
